FAERS Safety Report 25629661 (Version 1)
Quarter: 2025Q3

REPORT INFORMATION
  Report Type: Spontaneous
  Country: US (occurrence: US)
  Receive Date: 20250731
  Receipt Date: 20250731
  Transmission Date: 20251021
  Serious: Yes (Hospitalization)
  Sender: BIOMARIN
  Company Number: US-SA-2025SA219776

PATIENT
  Age: 4 Year
  Sex: Male

DRUGS (1)
  1. LARONIDASE [Suspect]
     Active Substance: LARONIDASE
     Indication: Mucopolysaccharidosis I
     Dosage: 11.6 (UNITS UNKNOWN), QW
     Dates: start: 202010

REACTIONS (4)
  - Catheter site infection [Unknown]
  - Fungal infection [Unknown]
  - Rhinovirus infection [Unknown]
  - Pyrexia [Unknown]
